FAERS Safety Report 16901912 (Version 6)
Quarter: 2020Q3

REPORT INFORMATION
  Report Type: Report from Study
  Country: None (occurrence: JP)
  Receive Date: 20191010
  Receipt Date: 20200703
  Transmission Date: 20201102
  Serious: Yes (Hospitalization)
  Sender: FDA-Public Use
  Company Number: JP-ABBVIE-19K-087-2937519-00

PATIENT
  Age: 81 Year
  Sex: Female

DRUGS (1)
  1. DUODOPA [Suspect]
     Active Substance: CARBIDOPA\LEVODOPA
     Indication: PARKINSON^S DISEASE
     Route: 050
     Dates: start: 20190730

REACTIONS (6)
  - Stoma site discharge [Not Recovered/Not Resolved]
  - Therapeutic product effect decreased [Unknown]
  - Chromaturia [Unknown]
  - Tremor [Unknown]
  - Malaise [Recovered/Resolved]
  - Hypoacusis [Unknown]

NARRATIVE: CASE EVENT DATE: 2019
